FAERS Safety Report 19102309 (Version 1)
Quarter: 2021Q2

REPORT INFORMATION
  Report Type: Spontaneous
  Country: US (occurrence: US)
  Receive Date: 20210407
  Receipt Date: 20210407
  Transmission Date: 20210717
  Serious: Yes (Death)
  Sender: FDA-Public Use
  Company Number: None

PATIENT
  Sex: Female

DRUGS (24)
  1. PRALUENT [Suspect]
     Active Substance: ALIROCUMAB
     Indication: PRIMARY BILIARY CHOLANGITIS
     Dosage: 1 PEN Q14D SQ
     Route: 058
     Dates: start: 20200116
  2. AZITHROMYCIN ANHYDROUS. [Concomitant]
     Active Substance: AZITHROMYCIN ANHYDROUS
  3. DOXYCYCL HYC [Concomitant]
  4. FLUCONAZOLE. [Concomitant]
     Active Substance: FLUCONAZOLE
  5. METOPROL SUC ER [Concomitant]
     Active Substance: METOPROLOL SUCCINATE
  6. OXYCODONE [Concomitant]
     Active Substance: OXYCODONE
  7. TRIAMCINOLON CRE [Concomitant]
  8. BYSTOLIC [Concomitant]
     Active Substance: NEBIVOLOL HYDROCHLORIDE
  9. NYSTATIN. [Concomitant]
     Active Substance: NYSTATIN
  10. ALBUTEROL HFA [Concomitant]
     Active Substance: ALBUTEROL SULFATE
  11. METFORMIN ER [Concomitant]
     Active Substance: METFORMIN HYDROCHLORIDE
  12. PREDNISONE. [Concomitant]
     Active Substance: PREDNISONE
  13. AMLODIPINE [Concomitant]
     Active Substance: AMLODIPINE BESYLATE
  14. BENZONATATE. [Concomitant]
     Active Substance: BENZONATATE
  15. FENOFIBRATE. [Concomitant]
     Active Substance: FENOFIBRATE
  16. HYDROXYCHLOR [Concomitant]
     Active Substance: HYDROXYCHLOROQUINE
  17. METHYLPRED [Concomitant]
     Active Substance: METHYLPREDNISOLONE
  18. CEFUROXIME. [Concomitant]
     Active Substance: CEFUROXIME
  19. AMOX/K CLAV [Concomitant]
     Active Substance: AMOXICILLIN\CLAVULANATE POTASSIUM
  20. FLUDROCORT [Concomitant]
  21. PANTOPRAZOLE [Concomitant]
     Active Substance: PANTOPRAZOLE
  22. IBRANCE [Concomitant]
     Active Substance: PALBOCICLIB
  23. ATORVASTATIN [Concomitant]
     Active Substance: ATORVASTATIN
  24. FAMOTIDINE. [Concomitant]
     Active Substance: FAMOTIDINE

REACTIONS (1)
  - Death [None]
